FAERS Safety Report 8247887-2 (Version None)
Quarter: 2012Q1

REPORT INFORMATION
  Report Type: 
  Country: None (occurrence: None)
  Receive Date: 20120330
  Receipt Date: 20120319
  Transmission Date: 20120608
  Serious: Yes (Hospitalization, Other)
  Sender: FDA-Public Use
  Company Number: US-MERCK-1102USA01698

PATIENT
  Age: 64 Year
  Sex: Female
  Weight: 64 kg

DRUGS (7)
  1. VITAMINS (UNSPECIFIED) [Concomitant]
     Route: 065
  2. FOSAMAX [Suspect]
     Route: 048
     Dates: start: 20060101, end: 20090101
  3. FOSAMAX [Suspect]
     Indication: OSTEOPOROSIS PROPHYLAXIS
     Route: 048
     Dates: start: 20010101
  4. FOSAMAX [Suspect]
     Route: 048
     Dates: start: 20060101, end: 20090101
  5. FLAXSEED [Concomitant]
     Route: 065
  6. FOSAMAX [Suspect]
     Indication: OSTEOPOROSIS
     Route: 048
     Dates: start: 20010101
  7. ASCORBIC ACID [Concomitant]
     Route: 065

REACTIONS (35)
  - FALL [None]
  - CATARACT NUCLEAR [None]
  - TOOTH DISORDER [None]
  - PAIN IN EXTREMITY [None]
  - LEUKOPENIA [None]
  - CHOLELITHIASIS [None]
  - CYSTOCELE [None]
  - WRIST FRACTURE [None]
  - GASTROOESOPHAGEAL REFLUX DISEASE [None]
  - ENTEROCELE [None]
  - HAEMORRHAGIC ANAEMIA [None]
  - PYELOCALIECTASIS [None]
  - PLANTAR FASCIITIS [None]
  - OESOPHAGITIS [None]
  - ARTHRALGIA [None]
  - SYNOVITIS [None]
  - ARTHRITIS [None]
  - BLADDER PROLAPSE [None]
  - CERVIX INFLAMMATION [None]
  - FOOT FRACTURE [None]
  - NEUROMA [None]
  - UTERINE POLYP [None]
  - FEMUR FRACTURE [None]
  - TIBIA FRACTURE [None]
  - CALCULUS URETERIC [None]
  - LOWER LIMB FRACTURE [None]
  - HYDRONEPHROSIS [None]
  - SKIN LESION [None]
  - GAIT DISTURBANCE [None]
  - URINARY RETENTION [None]
  - DERMATITIS CONTACT [None]
  - MENISCUS LESION [None]
  - OSTEOARTHRITIS [None]
  - CATARACT CORTICAL [None]
  - HAEMATURIA [None]
